FAERS Safety Report 17246351 (Version 2)
Quarter: 2020Q1

REPORT INFORMATION
  Report Type: Spontaneous
  Country: US (occurrence: US)
  Receive Date: 20200108
  Receipt Date: 20200226
  Transmission Date: 20200409
  Serious: Yes (Other)
  Sender: FDA-Public Use
  Company Number: US-PFIZER INC-2020005450

PATIENT
  Age: 66 Year
  Sex: Female

DRUGS (1)
  1. GABAPENTIN. [Suspect]
     Active Substance: GABAPENTIN
     Indication: NEUROPATHY PERIPHERAL
     Dosage: 100 MG, UNK

REACTIONS (9)
  - Limb discomfort [Unknown]
  - Neoplasm [Unknown]
  - Cataract [Unknown]
  - Fall [Unknown]
  - Hypoaesthesia [Unknown]
  - Drug ineffective for unapproved indication [Unknown]
  - Alopecia [Unknown]
  - Off label use [Unknown]
  - Hip fracture [Unknown]
